FAERS Safety Report 9685250 (Version 1)
Quarter: 2013Q4

REPORT INFORMATION
  Report Type: Spontaneous
  Country: US (occurrence: None)
  Receive Date: 20131112
  Receipt Date: 20131112
  Transmission Date: 20140711
  Serious: Yes (Hospitalization)
  Sender: FDA-Public Use
  Company Number: None

PATIENT
  Age: 72 Year
  Sex: Male
  Weight: 127 kg

DRUGS (21)
  1. CYTOXAN [Suspect]
     Indication: PLASMA CELL MYELOMA
     Dosage: 700MG DAYS 1-4 QD INTRAVENOUS
     Route: 042
     Dates: start: 20131018, end: 20131022
  2. SIROLIMUS [Suspect]
     Indication: PLASMA CELL MYELOMA
     Dosage: 12MG DAY -2, 4MG DAYS -1 TO 4 QD ORAL
     Route: 048
     Dates: start: 20131016, end: 20131021
  3. ACETYLCARNITINE [Concomitant]
  4. ABSORBIC ACID [Concomitant]
  5. CHOLECALCIFEROL 2000MG [Concomitant]
  6. COENXYME Q10 [Concomitant]
  7. GLUCOSAMINE-CHONDROITIN-VIT C-MN [Concomitant]
  8. LATANOPROST [Concomitant]
  9. MAGNESIUM [Concomitant]
  10. MULTIVITAMIN ONE [Concomitant]
  11. OMEGA 3 FATTY ACIDS [Concomitant]
  12. SELENIUM [Concomitant]
  13. VITAMIN B COMPLEX/FOLIC ACID [Concomitant]
  14. ZINC [Concomitant]
  15. ASPIRIN [Concomitant]
  16. METOPROLOL TARTRATE [Concomitant]
  17. ACYCLOVIR 800MG [Concomitant]
  18. FLUCONAZOLE 200MG [Concomitant]
  19. LEVOFLOXACIN [Concomitant]
  20. LACTOBACILLUS RHAMNOSUS GG [Concomitant]
  21. OMEGPRAZOLE [Concomitant]

REACTIONS (5)
  - Febrile neutropenia [None]
  - Diarrhoea [None]
  - Anaemia [None]
  - Thrombocytopenia [None]
  - Blood creatinine increased [None]
